FAERS Safety Report 9355180 (Version 1)
Quarter: 2013Q2

REPORT INFORMATION
  Report Type: Spontaneous
  Country: BR (occurrence: BR)
  Receive Date: 20130619
  Receipt Date: 20130619
  Transmission Date: 20140414
  Serious: Yes (Other)
  Sender: FDA-Public Use
  Company Number: PHHY2013BR061777

PATIENT
  Age: 55 Year
  Sex: Male

DRUGS (4)
  1. MYFORTIC [Suspect]
     Indication: IMMUNOSUPPRESSION
     Dosage: 720 MG, BID
  2. THYMOGLOBULINE [Concomitant]
     Indication: IMMUNOSUPPRESSION
     Dosage: 6 MG/KG FRACTIONATED INTO 4 DOSES ON ALTERNATE DAYS
  3. PREDNISONE [Concomitant]
     Indication: IMMUNOSUPPRESSION
  4. EVEROLIMUS [Concomitant]
     Indication: IMMUNOSUPPRESSION
     Dosage: 1.5 MG, BID

REACTIONS (2)
  - Diabetic foot [Unknown]
  - Blood creatinine increased [Unknown]
